FAERS Safety Report 14935950 (Version 1)
Quarter: 2018Q2

REPORT INFORMATION
  Report Type: Spontaneous
  Country: HK (occurrence: HK)
  Receive Date: 20180524
  Receipt Date: 20180524
  Transmission Date: 20180711
  Serious: Yes (Hospitalization)
  Sender: FDA-Public Use
  Company Number: HK-ABBVIE-18P-075-2359600-00

PATIENT
  Age: 29 Year
  Sex: Female

DRUGS (1)
  1. ADALIMUMAB [Suspect]
     Active Substance: ADALIMUMAB
     Indication: SPONDYLITIS
     Route: 058

REACTIONS (3)
  - Drug hypersensitivity [Recovered/Resolved]
  - Injection site urticaria [Recovered/Resolved]
  - Injection site recall reaction [Recovered/Resolved]
